FAERS Safety Report 17684289 (Version 2)
Quarter: 2020Q2

REPORT INFORMATION
  Report Type: Spontaneous
  Country: IT (occurrence: IT)
  Receive Date: 20200420
  Receipt Date: 20200504
  Transmission Date: 20200714
  Serious: Yes (Other)
  Sender: FDA-Public Use
  Company Number: IT-MYLANLABS-2020M1038428

PATIENT
  Age: 43 Year
  Sex: Female

DRUGS (18)
  1. PREDNISONE. [Suspect]
     Active Substance: PREDNISONE
     Indication: SYSTEMIC LUPUS ERYTHEMATOSUS
     Dosage: UNK (50 MG QD, TAPERING DOSE)
     Route: 065
     Dates: start: 201606, end: 201607
  2. ENVARSUS XR [Suspect]
     Active Substance: TACROLIMUS
     Indication: SYSTEMIC LUPUS ERYTHEMATOSUS
     Dosage: UNK, QD
     Route: 065
  3. MYCOPHENOLATE MOFETIL. [Suspect]
     Active Substance: MYCOPHENOLATE MOFETIL
     Indication: SYSTEMIC LUPUS ERYTHEMATOSUS
     Dosage: 1 DOSAGE FORM, QD
     Route: 065
  4. BELIMUMAB [Suspect]
     Active Substance: BELIMUMAB
     Dosage: UNK
     Route: 065
  5. BELIMUMAB [Suspect]
     Active Substance: BELIMUMAB
     Dosage: UNK
     Route: 065
  6. PREDNISONE. [Suspect]
     Active Substance: PREDNISONE
     Dosage: UNK UNK (10 MG QD, DOSE TAPERING)
     Route: 065
     Dates: start: 201708, end: 201709
  7. BELIMUMAB [Suspect]
     Active Substance: BELIMUMAB
     Indication: SYSTEMIC LUPUS ERYTHEMATOSUS
     Dosage: UNK
     Route: 065
     Dates: start: 201608
  8. BELIMUMAB [Suspect]
     Active Substance: BELIMUMAB
     Indication: PROPHYLAXIS AGAINST TRANSPLANT REJECTION
     Dosage: UNK
     Route: 065
     Dates: end: 201705
  9. PREDNISONE. [Suspect]
     Active Substance: PREDNISONE
     Dosage: 25 MG, QD
     Route: 065
     Dates: start: 201607, end: 201705
  10. PREDNISONE. [Suspect]
     Active Substance: PREDNISONE
     Dosage: UNK (25 MG QD, DOSE TAPERING)
     Route: 065
     Dates: start: 201705, end: 201706
  11. RITUXIMAB. [Concomitant]
     Active Substance: RITUXIMAB
     Indication: SYSTEMIC LUPUS ERYTHEMATOSUS
     Dosage: UNK
  12. PREDNISONE. [Suspect]
     Active Substance: PREDNISONE
     Dosage: 15 MG, QD
     Route: 065
  13. PREDNISONE. [Suspect]
     Active Substance: PREDNISONE
     Dosage: 15 MG QD, DOSE TAPERING
     Route: 065
     Dates: start: 201706, end: 201707
  14. PREDNISONE. [Suspect]
     Active Substance: PREDNISONE
     Dosage: 12.5 MG QD, DOSE TAPERING
     Route: 065
     Dates: start: 201707, end: 201708
  15. METHYLPREDNISOLONE. [Concomitant]
     Active Substance: METHYLPREDNISOLONE
     Indication: SYSTEMIC LUPUS ERYTHEMATOSUS
     Dosage: UNK (PULSES)
  16. PREDNISONE. [Suspect]
     Active Substance: PREDNISONE
     Dosage: UNK UNK (7.5 MG QD, DOSE TAPERING)
     Route: 065
     Dates: start: 201709
  17. TACROLIMUS. [Suspect]
     Active Substance: TACROLIMUS
     Indication: SYSTEMIC LUPUS ERYTHEMATOSUS
     Dosage: 1 DOSAGE FORM, QD
  18. HYDROXYCHLOROQUINE SULFATE. [Suspect]
     Active Substance: HYDROXYCHLOROQUINE SULFATE
     Indication: SYSTEMIC LUPUS ERYTHEMATOSUS
     Dosage: 400 MG, QD
     Route: 065

REACTIONS (6)
  - Therapy non-responder [Recovered/Resolved]
  - Drug ineffective [Unknown]
  - Arthralgia [Recovered/Resolved]
  - Off label use [Unknown]
  - Systemic lupus erythematosus [Recovered/Resolved]
  - Pyrexia [Recovered/Resolved]

NARRATIVE: CASE EVENT DATE: 201606
